FAERS Safety Report 10238238 (Version 1)
Quarter: 2014Q2

REPORT INFORMATION
  Report Type: Spontaneous
  Country: US (occurrence: US)
  Receive Date: 20140616
  Receipt Date: 20140616
  Transmission Date: 20141212
  Serious: No
  Sender: FDA-Public Use
  Company Number: US-PFIZER INC-2014164268

PATIENT
  Age: 56 Year
  Sex: Female
  Weight: 95.2 kg

DRUGS (6)
  1. LYRICA [Suspect]
     Indication: FIBROMYALGIA
     Dosage: 150 MG, DAILY
  2. CYMBALTA [Concomitant]
     Indication: DEPRESSION
     Dosage: 60 MG, DAILY
  3. HYDROCHLOROTHIAZIDE [Concomitant]
     Indication: DIURETIC THERAPY
     Dosage: 10 MG, DAILY
  4. DOXEPIN [Concomitant]
     Dosage: 20 MG, DAILY
  5. AMBIEN [Concomitant]
     Dosage: 10 MG, DAILY
  6. IMITREX [Concomitant]
     Indication: MIGRAINE
     Dosage: 50 MG, DAILY

REACTIONS (1)
  - Pain [Not Recovered/Not Resolved]
